FAERS Safety Report 9850813 (Version 1)
Quarter: 2014Q1

REPORT INFORMATION
  Report Type: Spontaneous
  Country: DE (occurrence: DE)
  Receive Date: 20140128
  Receipt Date: 20140128
  Transmission Date: 20141002
  Serious: Yes (Other)
  Sender: FDA-Public Use
  Company Number: DE-TEVA-457471GER

PATIENT
  Age: 43 Year
  Sex: Male

DRUGS (3)
  1. DIAZEPAM [Suspect]
     Dosage: 20 MILLIGRAM DAILY;
  2. LORAZEPAM [Suspect]
  3. OXAZEPAM [Suspect]

REACTIONS (1)
  - Neutropenia [Unknown]
